FAERS Safety Report 16879979 (Version 2)
Quarter: 2019Q4

REPORT INFORMATION
  Report Type: Report from Study
  Country: None (occurrence: US)
  Receive Date: 20191003
  Receipt Date: 20191010
  Transmission Date: 20200122
  Serious: Yes (Death)
  Sender: FDA-Public Use
  Company Number: US-ABBVIE-19K-163-2948309-00

PATIENT
  Age: 74 Year
  Sex: Male

DRUGS (1)
  1. HUMIRA [Suspect]
     Active Substance: ADALIMUMAB
     Indication: PSORIASIS
     Route: 058
     Dates: start: 20160609, end: 20190923

REACTIONS (6)
  - Blood glucose fluctuation [Unknown]
  - Peripheral swelling [Unknown]
  - Death [Fatal]
  - Weight increased [Unknown]
  - Blister [Unknown]
  - Dyspnoea [Unknown]

NARRATIVE: CASE EVENT DATE: 20190923
